FAERS Safety Report 6936700-9 (Version None)
Quarter: 2010Q3

REPORT INFORMATION
  Report Type: 
  Country: None (occurrence: None)
  Receive Date: 20100823
  Receipt Date: 20100813
  Transmission Date: 20110219
  Serious: Yes (Hospitalization)
  Sender: FDA-Public Use
  Company Number: US-AMGEN-KDC427994

PATIENT
  Sex: Male

DRUGS (17)
  1. PANITUMUMAB [Suspect]
     Indication: COLORECTAL CANCER
     Route: 042
     Dates: start: 20100421, end: 20100616
  2. LEUCOVORIN CALCIUM [Suspect]
  3. FLUOROURACIL [Suspect]
  4. OXALIPLATIN [Suspect]
  5. FLEXERIL [Concomitant]
  6. VIBRAMYCIN [Concomitant]
  7. ATIVAN [Concomitant]
  8. IRON SULFATETHIAMIN COMPOUND TAB [Concomitant]
  9. OXYCODONE [Concomitant]
  10. ZOFRAN [Concomitant]
  11. LISINOPRIL [Concomitant]
  12. MAGNESIUM [Concomitant]
  13. MULTI-VITAMINS [Concomitant]
  14. FENTANYL CITRATE [Concomitant]
  15. UNSPECIFIED PAIN MEDICATION [Concomitant]
  16. EMEND [Concomitant]
  17. GRANISETRON HCL [Concomitant]

REACTIONS (1)
  - COLITIS [None]
